FAERS Safety Report 16468547 (Version 2)
Quarter: 2020Q1

REPORT INFORMATION
  Report Type: Spontaneous
  Country: FR (occurrence: FR)
  Receive Date: 20190624
  Receipt Date: 20200111
  Transmission Date: 20200409
  Serious: Yes (Hospitalization, Other)
  Sender: FDA-Public Use
  Company Number: FR-ACCORD-134029

PATIENT
  Age: 58 Year
  Sex: Male
  Weight: 54 kg

DRUGS (8)
  1. FLUOROURACIL. [Suspect]
     Active Substance: FLUOROURACIL
     Indication: SQUAMOUS CELL CARCINOMA OF THE HYPOPHARYNX
     Route: 041
     Dates: start: 20190319, end: 20190319
  2. VANCOMYCIN [Suspect]
     Active Substance: VANCOMYCIN
     Indication: SQUAMOUS CELL CARCINOMA OF THE HYPOPHARYNX
     Route: 042
     Dates: start: 20190326, end: 20190328
  3. CISPLATIN. [Suspect]
     Active Substance: CISPLATIN
     Indication: SQUAMOUS CELL CARCINOMA OF THE HYPOPHARYNX
     Route: 042
     Dates: start: 20190319, end: 20190319
  4. METHYLPREDNISOLONE. [Suspect]
     Active Substance: METHYLPREDNISOLONE
     Indication: SQUAMOUS CELL CARCINOMA OF THE HYPOPHARYNX
     Route: 042
     Dates: start: 20190319, end: 20190319
  5. PREDNISONE. [Suspect]
     Active Substance: PREDNISONE
     Indication: SQUAMOUS CELL CARCINOMA OF THE HYPOPHARYNX
     Route: 048
     Dates: start: 20190320, end: 20190322
  6. APREPITANT. [Suspect]
     Active Substance: APREPITANT
     Indication: SQUAMOUS CELL CARCINOMA OF THE HYPOPHARYNX
     Route: 048
     Dates: start: 20190319, end: 20190321
  7. TAXOTERE [Suspect]
     Active Substance: DOCETAXEL
     Indication: SQUAMOUS CELL CARCINOMA OF THE HYPOPHARYNX
     Route: 042
     Dates: start: 20190319, end: 20190319
  8. ONDANSETRON [Suspect]
     Active Substance: ONDANSETRON
     Indication: SQUAMOUS CELL CARCINOMA OF THE HYPOPHARYNX
     Route: 042
     Dates: start: 20190319, end: 20190319

REACTIONS (2)
  - Acute kidney injury [Not Recovered/Not Resolved]
  - Acute generalised exanthematous pustulosis [Not Recovered/Not Resolved]

NARRATIVE: CASE EVENT DATE: 20190324
